FAERS Safety Report 6588130-X (Version None)
Quarter: 2010Q1

REPORT INFORMATION
  Report Type: 
  Country: None (occurrence: None)
  Receive Date: 20100212
  Receipt Date: 20100122
  Transmission Date: 20100710
  Serious: Yes (Death, Life-Threatening)
  Sender: FDA-Public Use
  Company Number: 487428

PATIENT
  Age: 68 Year
  Sex: Male

DRUGS (4)
  1. PACLITAXEL [Suspect]
     Dosage: 62.7 MG, INTRAVENOUS; 300 MG, INTRAVENOUS
     Route: 042
  2. CARBOPLATIN [Suspect]
     Dosage: 775.5 MG
     Dates: start: 20100112
  3. AVASTIN [Suspect]
     Dosage: 1110 MG, INTRAVENOUS
     Route: 042
     Dates: start: 20100112
  4. ZOFRAN /00955302/) [Concomitant]

REACTIONS (1)
  - ACUTE PULMONARY OEDEMA [None]
